FAERS Safety Report 15273266 (Version 1)
Quarter: 2018Q3

REPORT INFORMATION
  Report Type: Spontaneous
  Country: ES (occurrence: ES)
  Receive Date: 20180813
  Receipt Date: 20180813
  Transmission Date: 20181010
  Serious: Yes (Other)
  Sender: FDA-Public Use
  Company Number: PHHY2018ES070649

PATIENT
  Age: 68 Year
  Sex: Male

DRUGS (4)
  1. FUROSEMIDA [Concomitant]
     Active Substance: FUROSEMIDE
     Dosage: UNK (PAUTA VARIABLE DURANTE TODO EL INGRESO)
     Route: 042
     Dates: start: 20170810
  2. LEVETIRACETAM. [Suspect]
     Active Substance: LEVETIRACETAM
     Indication: SUBDURAL HAEMATOMA
     Dosage: 1000 MG, Q12H
     Route: 042
     Dates: start: 20170416, end: 20170521
  3. ENOXAPARINA [Suspect]
     Active Substance: ENOXAPARIN
     Indication: PRODUCT USED FOR UNKNOWN INDICATION
     Dosage: 80 MG, Q12H
     Route: 058
     Dates: start: 20170424, end: 20170521
  4. FUROSEMIDA [Concomitant]
     Active Substance: FUROSEMIDE
     Indication: PRODUCT USED FOR UNKNOWN INDICATION
     Dosage: UNK (PAUTA VARIABLE DURANTE TODO EL INGRESO)
     Route: 042
     Dates: start: 20170424

REACTIONS (1)
  - Eosinophilia [Recovered/Resolved]

NARRATIVE: CASE EVENT DATE: 20170427
